FAERS Safety Report 7875057-6 (Version None)
Quarter: 2011Q4

REPORT INFORMATION
  Report Type: 
  Country: None (occurrence: None)
  Receive Date: 20111031
  Receipt Date: 20111019
  Transmission Date: 20120403
  Serious: Yes (Hospitalization)
  Sender: FDA-Public Use
  Company Number: IT-BRISTOL-MYERS SQUIBB COMPANY-16093940

PATIENT
  Age: 64 Year
  Sex: Female

DRUGS (6)
  1. LASITONE [Concomitant]
     Dosage: STRENGTH: 25 MG + 37 MG CAPS
     Route: 048
  2. SIMVASTATIN [Concomitant]
     Dosage: TABS
  3. ALLOPURINOL [Concomitant]
     Dosage: STRENGTH: ZYLORIC 300 MG TABS
     Route: 048
  4. COUMADIN [Suspect]
     Indication: ATRIAL FIBRILLATION
     Dosage: 1 DF = 1 UNIT.INTRP ON 19SEP11
     Dates: start: 20110826
  5. CORDARONE [Concomitant]
     Dosage: TABS
  6. RAMIPRIL [Concomitant]
     Dosage: STRNGTH: TRIATEC 10 MG TABS
     Route: 048

REACTIONS (2)
  - STEVENS-JOHNSON SYNDROME [None]
  - HYPOTENSION [None]
